FAERS Safety Report 9596979 (Version 1)
Quarter: 2013Q4

REPORT INFORMATION
  Report Type: Spontaneous
  Country: US (occurrence: US)
  Receive Date: 20131004
  Receipt Date: 20131004
  Transmission Date: 20140711
  Serious: Yes (Hospitalization)
  Sender: FDA-Public Use
  Company Number: US-CELGENEUS-163-21880-13094342

PATIENT
  Age: 73 Year
  Sex: Female
  Weight: 91.25 kg

DRUGS (6)
  1. REVLIMID [Suspect]
     Indication: PLASMA CELL MYELOMA
     Dosage: 25 MILLIGRAM
     Route: 048
     Dates: start: 201110
  2. REVLIMID [Suspect]
     Dosage: 25 MILLIGRAM
     Route: 048
     Dates: start: 20121001
  3. GABAPENTIN [Concomitant]
     Indication: NEUROPATHY PERIPHERAL
     Route: 065
  4. HYDROXYZINE [Concomitant]
     Indication: PRURITUS
     Route: 065
  5. HYDROCODONE [Concomitant]
     Indication: PAIN
     Dosage: 7.5/500
     Route: 065
  6. COUGH SYRUP [Concomitant]
     Indication: PRODUCT USED FOR UNKNOWN INDICATION
     Route: 065

REACTIONS (2)
  - Asthma [Recovered/Resolved]
  - Bronchitis [Recovered/Resolved]
